FAERS Safety Report 20173067 (Version 1)
Quarter: 2021Q4

REPORT INFORMATION
  Report Type: Spontaneous
  Country: GB (occurrence: GB)
  Receive Date: 20211211
  Receipt Date: 20211211
  Transmission Date: 20220303
  Serious: Yes (Other)
  Sender: FDA-Public Use
  Company Number: GB-NOVARTISPH-NVSC2007GB000902

PATIENT
  Age: 54 Year
  Sex: Male

DRUGS (440)
  1. DIPRIVAN [Suspect]
     Active Substance: PROPOFOL
     Indication: Ill-defined disorder
     Dosage: UNK
     Route: 042
     Dates: start: 2006
  2. DIPRIVAN [Suspect]
     Active Substance: PROPOFOL
     Indication: Pneumonia
     Dosage: UNK
     Route: 042
  3. DIPRIVAN [Suspect]
     Active Substance: PROPOFOL
     Dosage: INFUSION DRUG DOSAGE FORM 333
     Route: 065
     Dates: start: 2006
  4. DIPRIVAN [Suspect]
     Active Substance: PROPOFOL
     Dosage: UNK
     Route: 042
  5. DIPRIVAN [Suspect]
     Active Substance: PROPOFOL
     Dosage: UNK
     Route: 065
     Dates: start: 2006
  6. AMOXICILLIN [Suspect]
     Active Substance: AMOXICILLIN
     Indication: Ill-defined disorder
     Dosage: 1 G, TID
     Route: 042
     Dates: start: 20060913
  7. AMOXICILLIN [Suspect]
     Active Substance: AMOXICILLIN
     Indication: Pneumonia
     Dosage: 1 G 3/1 DAYS
     Route: 042
  8. HYDROCORTISONE [Suspect]
     Active Substance: HYDROCORTISONE
     Dosage: 1 GRAM, TID
     Route: 042
  9. HYDROCORTISONE [Suspect]
     Active Substance: HYDROCORTISONE
     Dosage: TIME INTERVAL
     Route: 042
  10. HYDROCORTISONE [Suspect]
     Active Substance: HYDROCORTISONE
     Dosage: 250 MG, TID
     Route: 042
     Dates: start: 20060913
  11. HYDROCORTISONE [Suspect]
     Active Substance: HYDROCORTISONE
     Dosage: UNK
     Route: 065
  12. HYDROCORTISONE [Suspect]
     Active Substance: HYDROCORTISONE
     Dosage: 3 G, QD
     Route: 042
     Dates: start: 20060913
  13. HYDROCORTISONE [Suspect]
     Active Substance: HYDROCORTISONE
     Dosage: 250 MG
     Route: 042
     Dates: start: 20060913
  14. HYDROCORTISONE [Suspect]
     Active Substance: HYDROCORTISONE
     Dosage: 250 MG
     Route: 048
     Dates: start: 20060913
  15. HYDROCORTISONE [Suspect]
     Active Substance: HYDROCORTISONE
     Dosage: 250 MG
     Route: 048
     Dates: start: 20060913
  16. HYDROCORTISONE [Suspect]
     Active Substance: HYDROCORTISONE
     Dosage: 1 G
     Route: 042
  17. HYDROCORTISONE [Suspect]
     Active Substance: HYDROCORTISONE
     Dosage: UNK G
     Route: 042
  18. HYDROCORTISONE [Suspect]
     Active Substance: HYDROCORTISONE
     Dosage: 1 G, TID
     Route: 042
  19. HYDROCORTISONE [Suspect]
     Active Substance: HYDROCORTISONE
     Dosage: UNK
     Route: 065
  20. CIPROFLOXACIN LACTATE [Suspect]
     Active Substance: CIPROFLOXACIN LACTATE
     Route: 065
  21. DOBUTAMINE [Suspect]
     Active Substance: DOBUTAMINE HYDROCHLORIDE
     Indication: Product used for unknown indication
     Dosage: UNKNOWN
     Route: 041
     Dates: start: 2006
  22. DOBUTAMINE [Suspect]
     Active Substance: DOBUTAMINE HYDROCHLORIDE
     Dosage: UNKNOWN
     Route: 041
     Dates: start: 2006
  23. DOBUTAMINE [Suspect]
     Active Substance: DOBUTAMINE HYDROCHLORIDE
     Dosage: UNKNOWN
     Route: 041
     Dates: start: 2006
  24. ACETAMINOPHEN [Suspect]
     Active Substance: ACETAMINOPHEN
     Indication: Product used for unknown indication
     Dosage: UNKNOWN
     Route: 065
     Dates: start: 2006
  25. ACETAMINOPHEN [Suspect]
     Active Substance: ACETAMINOPHEN
     Dosage: UNKNOWN
     Route: 042
     Dates: start: 2006
  26. ACETAMINOPHEN [Suspect]
     Active Substance: ACETAMINOPHEN
     Dosage: UNKNOWN
     Route: 065
     Dates: start: 2006
  27. ACETAMINOPHEN [Suspect]
     Active Substance: ACETAMINOPHEN
     Dosage: UNK
     Route: 065
  28. ACETAMINOPHEN [Suspect]
     Active Substance: ACETAMINOPHEN
     Dosage: UNKNOWN
     Route: 042
     Dates: start: 2006
  29. FLUCONAZOLE [Suspect]
     Active Substance: FLUCONAZOLE
     Indication: Product used for unknown indication
     Dosage: 200 MG, QD
     Route: 042
     Dates: start: 2006
  30. FLUCONAZOLE [Suspect]
     Active Substance: FLUCONAZOLE
     Dosage: 200 MG, QD
     Route: 042
  31. FLUCONAZOLE [Suspect]
     Active Substance: FLUCONAZOLE
     Dosage: 20 MG, QD
     Route: 042
     Dates: start: 2006
  32. FLUCONAZOLE [Suspect]
     Active Substance: FLUCONAZOLE
     Dosage: DRUG DOSAGE FORM230
     Route: 065
  33. FLUCONAZOLE [Suspect]
     Active Substance: FLUCONAZOLE
     Dosage: 20 MG, QD
     Route: 065
  34. FLUCONAZOLE [Suspect]
     Active Substance: FLUCONAZOLE
     Dosage: UNK UNK, QD
     Route: 065
  35. FLUCONAZOLE [Suspect]
     Active Substance: FLUCONAZOLE
     Dosage: UNK UNK, QD
     Route: 065
  36. FLUCONAZOLE [Suspect]
     Active Substance: FLUCONAZOLE
     Dosage: 200 MG
     Route: 042
     Dates: start: 2006
  37. FLUCONAZOLE [Suspect]
     Active Substance: FLUCONAZOLE
     Dosage: 20 MG, QD
     Route: 065
  38. FUROSEMIDE [Suspect]
     Active Substance: FUROSEMIDE
     Indication: Pneumonia
     Dosage: 20 MG, QD
     Route: 042
     Dates: start: 2006
  39. FUROSEMIDE [Suspect]
     Active Substance: FUROSEMIDE
     Indication: Ill-defined disorder
     Dosage: 20 MG, 1 DOSE 12 HOURS
     Route: 042
     Dates: start: 2006
  40. FUROSEMIDE [Suspect]
     Active Substance: FUROSEMIDE
     Dosage: 20 MG, QD
     Route: 048
  41. FUROSEMIDE [Suspect]
     Active Substance: FUROSEMIDE
     Dosage: 40 MG, BID
     Route: 042
     Dates: start: 2006
  42. FUROSEMIDE [Suspect]
     Active Substance: FUROSEMIDE
     Dosage: 20 MG, QD
     Route: 048
     Dates: start: 2006
  43. FUROSEMIDE [Suspect]
     Active Substance: FUROSEMIDE
     Dosage: 40 MG, QD
     Route: 042
  44. FUROSEMIDE [Suspect]
     Active Substance: FUROSEMIDE
     Dosage: 20 MG, 12 HOURS
     Route: 042
  45. FUROSEMIDE [Suspect]
     Active Substance: FUROSEMIDE
     Dosage: 20 MG, BID
     Route: 048
  46. FUROSEMIDE [Suspect]
     Active Substance: FUROSEMIDE
     Dosage: 20 MG, 1 DOSE 12 HOURS
     Route: 042
  47. FUROSEMIDE [Suspect]
     Active Substance: FUROSEMIDE
     Dosage: 40 MG(20MG 2/1 DAYS)
     Route: 042
  48. FUROSEMIDE [Suspect]
     Active Substance: FUROSEMIDE
     Dosage: UNK
     Route: 042
     Dates: start: 2006
  49. FUROSEMIDE [Suspect]
     Active Substance: FUROSEMIDE
     Dosage: UNK
     Route: 065
     Dates: start: 2006
  50. HEPARIN SODIUM [Suspect]
     Active Substance: HEPARIN SODIUM
     Indication: Ill-defined disorder
     Dosage: 3500 MCG, QD
     Route: 065
  51. HEPARIN SODIUM [Suspect]
     Active Substance: HEPARIN SODIUM
     Dosage: 3500 UNK
     Route: 065
  52. HEPARIN SODIUM [Suspect]
     Active Substance: HEPARIN SODIUM
     Dosage: 3500 UNK
     Route: 065
  53. LANSOPRAZOLE [Suspect]
     Active Substance: LANSOPRAZOLE
     Indication: Ill-defined disorder
     Dosage: 3 G
     Route: 042
  54. LANSOPRAZOLE [Suspect]
     Active Substance: LANSOPRAZOLE
     Indication: Pneumonia
     Dosage: 3 G
     Route: 042
     Dates: start: 2006
  55. LANSOPRAZOLE [Suspect]
     Active Substance: LANSOPRAZOLE
     Dosage: 1-2 MG ONCE DAILY
     Route: 042
     Dates: start: 2006
  56. LANSOPRAZOLE [Suspect]
     Active Substance: LANSOPRAZOLE
     Dosage: 30 MG, QD
     Route: 042
  57. LANSOPRAZOLE [Suspect]
     Active Substance: LANSOPRAZOLE
     Dosage: 30 MG
     Route: 042
     Dates: start: 2006
  58. LANSOPRAZOLE [Suspect]
     Active Substance: LANSOPRAZOLE
     Dosage: 30 MG
     Route: 042
  59. LANSOPRAZOLE [Suspect]
     Active Substance: LANSOPRAZOLE
     Dosage: 30 MG, QD
     Route: 042
     Dates: start: 2006
  60. LANSOPRAZOLE [Suspect]
     Active Substance: LANSOPRAZOLE
     Dosage: 30 UNK
     Route: 042
     Dates: start: 2006
  61. LANSOPRAZOLE [Suspect]
     Active Substance: LANSOPRAZOLE
     Dosage: 1-2MG
     Route: 042
  62. LANSOPRAZOLE [Suspect]
     Active Substance: LANSOPRAZOLE
     Dosage: 3 G
     Route: 042
  63. LANSOPRAZOLE [Suspect]
     Active Substance: LANSOPRAZOLE
     Dosage: 3 G
     Route: 042
  64. OMEPRAZOLE [Suspect]
     Active Substance: OMEPRAZOLE
     Indication: Pneumonia
     Dosage: 40 MG, QD
     Route: 042
  65. OMEPRAZOLE [Suspect]
     Active Substance: OMEPRAZOLE
     Dosage: 40 MG, QD
     Route: 042
     Dates: start: 2006
  66. OMEPRAZOLE [Suspect]
     Active Substance: OMEPRAZOLE
     Dosage: UNK
     Route: 065
  67. ALBUTEROL [Suspect]
     Active Substance: ALBUTEROL
     Indication: Product used for unknown indication
     Dosage: UNK
     Route: 065
     Dates: start: 2006
  68. ALBUTEROL [Suspect]
     Active Substance: ALBUTEROL
     Dosage: 1 DOSAGE FORM, PRN
     Route: 065
     Dates: start: 2006
  69. ALBUTEROL [Suspect]
     Active Substance: ALBUTEROL
     Dosage: UNK UNK, QD
     Route: 065
     Dates: start: 2006
  70. ALBUTEROL [Suspect]
     Active Substance: ALBUTEROL
     Dosage: 40 MG, QD
     Route: 065
     Dates: start: 2006
  71. ALBUTEROL [Suspect]
     Active Substance: ALBUTEROL
     Dosage: UNK UNK, PRN
     Route: 065
     Dates: start: 2006
  72. ALBUTEROL [Suspect]
     Active Substance: ALBUTEROL
     Dosage: UNK , PRN
     Route: 065
     Dates: start: 2006
  73. ALBUTEROL [Suspect]
     Active Substance: ALBUTEROL
     Dosage: UNK , PRN
     Route: 065
  74. CIPROFLOXACIN HYDROCHLORIDE [Suspect]
     Active Substance: CIPROFLOXACIN HYDROCHLORIDE
     Indication: Ill-defined disorder
     Dosage: 400 MG, QD
     Route: 042
  75. CIPROFLOXACIN HYDROCHLORIDE [Suspect]
     Active Substance: CIPROFLOXACIN HYDROCHLORIDE
     Dosage: UNK
     Route: 065
  76. SIMVASTATIN [Suspect]
     Active Substance: SIMVASTATIN
     Indication: Ill-defined disorder
     Dosage: 40 MG, QD
     Route: 065
  77. SIMVASTATIN [Suspect]
     Active Substance: SIMVASTATIN
     Indication: Pneumonia
     Dosage: 40 MG, QD
     Route: 042
     Dates: start: 2006
  78. SIMVASTATIN [Suspect]
     Active Substance: SIMVASTATIN
     Dosage: 40 MG, QD
     Route: 042
     Dates: start: 2006
  79. SIMVASTATIN [Suspect]
     Active Substance: SIMVASTATIN
     Dosage: 40 MG, QD
     Route: 042
  80. SIMVASTATIN [Suspect]
     Active Substance: SIMVASTATIN
     Dosage: 40 UNK
     Route: 042
     Dates: start: 2006
  81. SIMVASTATIN [Suspect]
     Active Substance: SIMVASTATIN
     Dosage: 40 UNK
     Route: 065
     Dates: start: 2006
  82. SIMVASTATIN [Suspect]
     Active Substance: SIMVASTATIN
     Dosage: 40 UNK
     Route: 065
  83. ACTRAPID [Suspect]
     Active Substance: INSULIN HUMAN
     Indication: Toxic epidermal necrolysis
     Dosage: 50 UNITS/50ML
     Route: 042
  84. ACTRAPID [Suspect]
     Active Substance: INSULIN HUMAN
     Indication: Pneumonia
     Dosage: 50 UNITS/50ML
     Route: 042
     Dates: start: 2006
  85. ACTRAPID [Suspect]
     Active Substance: INSULIN HUMAN
     Indication: Diabetes mellitus
     Dosage: UNK
     Route: 042
  86. ACTRAPID [Suspect]
     Active Substance: INSULIN HUMAN
     Dosage: INTRAVENOUS INFUSION
     Route: 042
  87. ACTRAPID [Suspect]
     Active Substance: INSULIN HUMAN
     Dosage: UNK, SOLUTION FOR INJECTION
     Route: 061
     Dates: start: 2006
  88. ACTRAPID [Suspect]
     Active Substance: INSULIN HUMAN
     Dosage: UNK
     Route: 065
  89. ACTRAPID [Suspect]
     Active Substance: INSULIN HUMAN
     Dosage: 50 UNITS/50ML
     Route: 042
     Dates: start: 2006
  90. ACTRAPID [Suspect]
     Active Substance: INSULIN HUMAN
     Dosage: UNK, SOLUTION FOR INFUSION
     Route: 042
     Dates: start: 2006
  91. ACTRAPID [Suspect]
     Active Substance: INSULIN HUMAN
     Dosage: SOLUTION FOR INJECTION
     Route: 065
  92. ACTRAPID [Suspect]
     Active Substance: INSULIN HUMAN
     Dosage: UNK,50 UNITS/50ML SOLUTION FOR INFUSION
     Route: 042
     Dates: start: 2006
  93. ALFENTANIL [Suspect]
     Active Substance: ALFENTANIL
     Indication: Ill-defined disorder
     Dosage: UNK
     Route: 042
     Dates: start: 2006
  94. ALFENTANIL [Suspect]
     Active Substance: ALFENTANIL
     Indication: Pneumonia
     Dosage: 120 DOSAGE FORM, INFUSION
     Route: 065
  95. ALFENTANIL [Suspect]
     Active Substance: ALFENTANIL
     Dosage: UNK, INFUSION
     Route: 042
  96. ALFENTANIL [Suspect]
     Active Substance: ALFENTANIL
     Dosage: UNK, INJECTION
     Route: 042
     Dates: start: 2006
  97. ALFENTANIL [Suspect]
     Active Substance: ALFENTANIL
     Dosage: 120 DOSAGE FORM, INFUSION
     Route: 042
     Dates: start: 2006
  98. ALFENTANIL [Suspect]
     Active Substance: ALFENTANIL
     Dosage: UNK, INFUSION
     Route: 061
  99. ALFENTANIL [Suspect]
     Active Substance: ALFENTANIL
     Dosage: UNK
     Route: 042
     Dates: start: 2006
  100. CITRIC ACID [Suspect]
     Active Substance: CITRIC ACID MONOHYDRATE
     Indication: Ill-defined disorder
     Dosage: 100 MG, QD
     Route: 065
  101. CITRIC ACID [Suspect]
     Active Substance: CITRIC ACID MONOHYDRATE
     Indication: Pneumonia
     Dosage: 100 MG
     Route: 065
     Dates: start: 2006
  102. CITRIC ACID [Suspect]
     Active Substance: CITRIC ACID MONOHYDRATE
     Dosage: 100 MG
     Route: 048
  103. CITRIC ACID [Suspect]
     Active Substance: CITRIC ACID MONOHYDRATE
     Dosage: 100 MG, QD
     Route: 048
  104. CITRIC ACID [Suspect]
     Active Substance: CITRIC ACID MONOHYDRATE
     Dosage: UNK
     Route: 065
     Dates: start: 2006
  105. TRICLOSAN [Suspect]
     Active Substance: TRICLOSAN
     Indication: Ill-defined disorder
     Dosage: 24 UNK
     Route: 065
  106. TRICLOSAN [Suspect]
     Active Substance: TRICLOSAN
     Indication: Pneumonia
     Dosage: 24 DOSAGE FORM (CUTANEOUS SOLUTION) DOSE UNIT: DOSAGE FORM
     Route: 003
     Dates: start: 2006
  107. TRICLOSAN [Suspect]
     Active Substance: TRICLOSAN
     Dosage: 24 DOSAGE FORM (CUTANEOUS SOLUTION) DOSE UNIT: DOSAGE FORM
     Route: 065
     Dates: start: 2006
  108. TRICLOSAN [Suspect]
     Active Substance: TRICLOSAN
     Dosage: 24 DOSAGE FORM (CUTANEOUS SOLUTION) DOSE UNIT: DOSAGE FORM
     Route: 065
     Dates: start: 2006
  109. TRICLOSAN [Suspect]
     Active Substance: TRICLOSAN
     Dosage: UNK
     Route: 065
     Dates: start: 2006
  110. TRICLOSAN [Suspect]
     Active Substance: TRICLOSAN
     Dosage: UNK
     Route: 065
     Dates: start: 2006
  111. BACTROBAN [Suspect]
     Active Substance: MUPIROCIN\MUPIROCIN CALCIUM
     Indication: Ill-defined disorder
     Dosage: UNK
     Route: 065
     Dates: start: 2006
  112. BACTROBAN [Suspect]
     Active Substance: MUPIROCIN\MUPIROCIN CALCIUM
     Indication: Pneumonia
  113. CALCIUM GLUCONATE [Suspect]
     Active Substance: CALCIUM GLUCONATE
     Indication: Ill-defined disorder
     Dosage: 10 ML
     Route: 042
     Dates: start: 2006
  114. CALCIUM GLUCONATE [Suspect]
     Active Substance: CALCIUM GLUCONATE
     Indication: Pneumonia
     Dosage: 10 ML, QD
     Route: 042
     Dates: start: 2006
  115. CALCIUM GLUCONATE [Suspect]
     Active Substance: CALCIUM GLUCONATE
     Dosage: 10 ML, QD
     Route: 042
     Dates: start: 2006
  116. CALCIUM GLUCONATE [Suspect]
     Active Substance: CALCIUM GLUCONATE
     Dosage: 10 ML, QD
     Route: 042
  117. CALCIUM CHLORIDE [Suspect]
     Active Substance: CALCIUM CHLORIDE
     Indication: Ill-defined disorder
     Dosage: UNK
     Route: 065
  118. CALCIUM CHLORIDE [Suspect]
     Active Substance: CALCIUM CHLORIDE
     Indication: Pneumonia
     Dosage: UNK
     Route: 065
     Dates: start: 2006
  119. CALCIUM CHLORIDE [Suspect]
     Active Substance: CALCIUM CHLORIDE
     Dosage: 10 MILLILITER DOSE UNIT: DOSAGE FORM
     Route: 042
  120. CALCIUM CHLORIDE [Suspect]
     Active Substance: CALCIUM CHLORIDE
     Dosage: 10 ML,UNK (DAILY DOSE: 10 MILLILITRE(S) DOSE UNIT: DOSAGE FORM
     Route: 042
     Dates: start: 2006
  121. CALCIUM CHLORIDE [Suspect]
     Active Substance: CALCIUM CHLORIDE
     Dosage: UNK
     Route: 065
     Dates: start: 2006
  122. CALCIUM CHLORIDE [Suspect]
     Active Substance: CALCIUM CHLORIDE
     Dosage: UNK
     Route: 042
  123. CALCIUM CHLORIDE [Suspect]
     Active Substance: CALCIUM CHLORIDE
     Dosage: 120 MG
     Route: 042
     Dates: start: 2006
  124. ENOXAPARIN SODIUM [Suspect]
     Active Substance: ENOXAPARIN SODIUM
     Indication: Ill-defined disorder
     Dosage: 20 MG, QD
     Route: 058
     Dates: start: 2006
  125. ENOXAPARIN SODIUM [Suspect]
     Active Substance: ENOXAPARIN SODIUM
     Indication: Pneumonia
     Dosage: 20 MG, QD
     Route: 058
  126. ENOXAPARIN SODIUM [Suspect]
     Active Substance: ENOXAPARIN SODIUM
     Dosage: 20 MG, QD
     Route: 058
     Dates: start: 2006
  127. ENOXAPARIN SODIUM [Suspect]
     Active Substance: ENOXAPARIN SODIUM
     Dosage: 20 MG, QD
     Route: 058
     Dates: start: 2006
  128. ENOXAPARIN SODIUM [Suspect]
     Active Substance: ENOXAPARIN SODIUM
     Dosage: 20 MG, QD
     Route: 065
  129. ENOXAPARIN SODIUM [Suspect]
     Active Substance: ENOXAPARIN SODIUM
     Dosage: UNK
     Route: 058
  130. ENOXAPARIN SODIUM [Suspect]
     Active Substance: ENOXAPARIN SODIUM
     Dosage: 20 MG, QD
     Route: 048
  131. ENOXAPARIN SODIUM [Suspect]
     Active Substance: ENOXAPARIN SODIUM
     Dosage: UNK
     Route: 065
  132. CEFTRIAXONE [Suspect]
     Active Substance: CEFTRIAXONE
     Indication: Ill-defined disorder
     Dosage: 2 G
     Route: 042
  133. CEFTRIAXONE [Suspect]
     Active Substance: CEFTRIAXONE
     Indication: Pneumonia
     Dosage: 2 G
     Route: 042
     Dates: start: 2006
  134. ENOXAPARIN [Suspect]
     Active Substance: ENOXAPARIN
     Indication: Product used for unknown indication
     Dosage: 20 MG, QD
     Route: 058
     Dates: start: 2006
  135. ENOXAPARIN [Suspect]
     Active Substance: ENOXAPARIN
     Indication: Ill-defined disorder
     Dosage: 20 UNK
     Route: 065
  136. ENOXAPARIN [Suspect]
     Active Substance: ENOXAPARIN
     Dosage: 20 UNK
     Route: 065
  137. SILVER SULFADIAZINE [Suspect]
     Active Substance: SILVER SULFADIAZINE
     Indication: Ill-defined disorder
     Route: 061
  138. SILVER SULFADIAZINE [Suspect]
     Active Substance: SILVER SULFADIAZINE
     Dosage: UNK
     Route: 061
     Dates: start: 2006
  139. FRAGMIN [Suspect]
     Active Substance: DALTEPARIN SODIUM
     Indication: Ill-defined disorder
     Dosage: 250 IU
     Route: 065
  140. FRAGMIN [Suspect]
     Active Substance: DALTEPARIN SODIUM
     Indication: Pneumonia
     Dosage: 250 IU, QD
     Route: 058
  141. FRAGMIN [Suspect]
     Active Substance: DALTEPARIN SODIUM
     Dosage: 2500 IU, QD
     Route: 065
     Dates: start: 2006
  142. FRAGMIN [Suspect]
     Active Substance: DALTEPARIN SODIUM
     Dosage: DAILY DOSE: 2500 INTERNATIONAL UNITS, 2500 IU, QD
     Route: 058
     Dates: start: 2006
  143. FRAGMIN [Suspect]
     Active Substance: DALTEPARIN SODIUM
     Dosage: 2500 IU, QD
     Route: 058
  144. FRAGMIN [Suspect]
     Active Substance: DALTEPARIN SODIUM
     Dosage: 200 INTERNATIONAL UNIT
     Route: 058
  145. FRAGMIN [Suspect]
     Active Substance: DALTEPARIN SODIUM
     Dosage: UNK UNK, QD
     Route: 058
  146. FRAGMIN [Suspect]
     Active Substance: DALTEPARIN SODIUM
     Dosage: UNK UNK, QD
     Route: 065
  147. FRAGMIN [Suspect]
     Active Substance: DALTEPARIN SODIUM
     Dosage: UNK
     Route: 058
     Dates: start: 2006
  148. FRAGMIN [Suspect]
     Active Substance: DALTEPARIN SODIUM
     Dosage: UNK UNK, QD
     Route: 065
  149. FRAGMIN [Suspect]
     Active Substance: DALTEPARIN SODIUM
     Dosage: UNK UNK, QD
     Route: 058
  150. FRAGMIN [Suspect]
     Active Substance: DALTEPARIN SODIUM
     Dosage: 200 IU
     Route: 058
     Dates: start: 2006
  151. FRAGMIN [Suspect]
     Active Substance: DALTEPARIN SODIUM
     Dosage: 200 IU, QD
     Route: 058
  152. FRAGMIN [Suspect]
     Active Substance: DALTEPARIN SODIUM
     Dosage: 200 IU, QD
     Route: 065
  153. FRAGMIN [Suspect]
     Active Substance: DALTEPARIN SODIUM
     Dosage: UNK
     Route: 065
  154. FRAGMIN [Suspect]
     Active Substance: DALTEPARIN SODIUM
     Dosage: 2500 IU, QD
     Route: 058
  155. FRAGMIN [Suspect]
     Active Substance: DALTEPARIN SODIUM
     Dosage: 2500 IU, QD
     Route: 058
  156. HYDROCORTISONE [Suspect]
     Active Substance: HYDROCORTISONE
     Indication: Ill-defined disorder
     Dosage: 100 MG, QD
     Route: 042
  157. HYDROCORTISONE [Suspect]
     Active Substance: HYDROCORTISONE
     Indication: Pneumonia
     Dosage: 100MG TOTAL
     Route: 065
  158. HYDROCORTISONE [Suspect]
     Active Substance: HYDROCORTISONE
     Dosage: 100 MG, 1 DOSAGE TOTAL
     Route: 065
  159. HYDROCORTISONE [Suspect]
     Active Substance: HYDROCORTISONE
     Dosage: 100 MG, QD
     Route: 042
     Dates: start: 2006
  160. HYDROCORTISONE [Suspect]
     Active Substance: HYDROCORTISONE
     Dosage: 100 MG, QD
     Route: 042
  161. HYDROCORTISONE [Suspect]
     Active Substance: HYDROCORTISONE
     Dosage: 100 UNK
     Route: 065
  162. HYDROCORTISONE [Suspect]
     Active Substance: HYDROCORTISONE
     Dosage: 100 MG, QD (POWDER FOR SOLUTION FOR INJECTION?
     Route: 042
     Dates: start: 2006
  163. HYDROCORTISONE [Suspect]
     Active Substance: HYDROCORTISONE
     Dosage: 100 MG TOTAL
     Route: 042
  164. HYDROCORTISONE [Suspect]
     Active Substance: HYDROCORTISONE
     Dosage: 100 MG TOTAL
     Route: 042
     Dates: start: 2006
  165. HYDROCORTISONE [Suspect]
     Active Substance: HYDROCORTISONE
     Dosage: UNK
     Route: 065
  166. HYDROCORTISONE [Suspect]
     Active Substance: HYDROCORTISONE
     Dosage: 100 MG, QD
     Route: 065
     Dates: start: 2006
  167. HYDROCORTISONE [Suspect]
     Active Substance: HYDROCORTISONE
     Dosage: UNK
     Route: 065
     Dates: start: 2006
  168. HYDROCORTISONE [Suspect]
     Active Substance: HYDROCORTISONE
     Dosage: 100 MG
     Route: 048
     Dates: start: 2006
  169. INSULIN HUMAN [Suspect]
     Active Substance: INSULIN HUMAN
     Indication: Toxic epidermal necrolysis
     Dosage: 50 UNITS/50ML (124 DOSAGE FORM-INTRAVENOUS INFUSION)
     Route: 042
     Dates: start: 2006
  170. INSULIN HUMAN [Suspect]
     Active Substance: INSULIN HUMAN
     Indication: Pneumonia
     Dosage: (124 DOSAGE FORMINTRAVENOUS INFUSION)
     Route: 042
  171. INSULIN HUMAN [Suspect]
     Active Substance: INSULIN HUMAN
     Indication: Diabetes mellitus
     Dosage: 50 UNITS/50ML (124 DOSAGE FORM-INTRAVENOUS INFUSION)
     Route: 042
     Dates: start: 2006
  172. INSULIN HUMAN [Suspect]
     Active Substance: INSULIN HUMAN
     Dosage: UNK
     Route: 042
     Dates: start: 2006
  173. INSULIN HUMAN [Suspect]
     Active Substance: INSULIN HUMAN
     Dosage: UNK
     Route: 042
  174. INSULIN HUMAN [Suspect]
     Active Substance: INSULIN HUMAN
     Dosage: UNK
     Route: 042
  175. INSULIN HUMAN [Suspect]
     Active Substance: INSULIN HUMAN
     Dosage: 50 UNITS/50ML
     Route: 042
  176. INSULIN HUMAN [Suspect]
     Active Substance: INSULIN HUMAN
     Dosage: 50 UNITS/50ML; DOSAGE FORM:SOLUTION FOR INJECTION
     Route: 042
     Dates: start: 2006
  177. INSULIN HUMAN [Suspect]
     Active Substance: INSULIN HUMAN
     Dosage: UNK
     Route: 065
  178. INSULIN HUMAN [Suspect]
     Active Substance: INSULIN HUMAN
     Dosage: 50 ML
     Route: 042
     Dates: start: 2006
  179. INSULIN HUMAN [Suspect]
     Active Substance: INSULIN HUMAN
     Dosage: UNK
     Route: 061
     Dates: start: 2006
  180. INNOHEP [Suspect]
     Active Substance: TINZAPARIN SODIUM
     Indication: Ill-defined disorder
     Dosage: 3.5 ML, QD DOSE UNIT: DOSAGE FORM
     Route: 065
  181. INNOHEP [Suspect]
     Active Substance: TINZAPARIN SODIUM
     Indication: Pneumonia
     Dosage: 3500 UG, QD
     Route: 065
     Dates: start: 2006
  182. INNOHEP [Suspect]
     Active Substance: TINZAPARIN SODIUM
     Dosage: 3500 MCL, 1 DF DAILY DOSE UNIT: DOSAGE FORM
     Route: 065
     Dates: start: 2006
  183. INNOHEP [Suspect]
     Active Substance: TINZAPARIN SODIUM
     Dosage: 3500 ML, QD DOSE UNIT: DOSAGE FORM
     Route: 065
     Dates: start: 2006
  184. INNOHEP [Suspect]
     Active Substance: TINZAPARIN SODIUM
     Dosage: 4 ML, QD
     Route: 065
  185. INNOHEP [Suspect]
     Active Substance: TINZAPARIN SODIUM
     Dosage: 3500 UG, QD
     Route: 065
     Dates: start: 2006
  186. INNOHEP [Suspect]
     Active Substance: TINZAPARIN SODIUM
     Dosage: UNK
     Route: 065
  187. LACTULOSE [Suspect]
     Active Substance: LACTULOSE
     Indication: Ill-defined disorder
     Dosage: 10 ML
     Route: 065
     Dates: start: 2006
  188. LACTULOSE [Suspect]
     Active Substance: LACTULOSE
     Indication: Pneumonia
     Dosage: 10 UNK
     Route: 050
  189. LACTULOSE [Suspect]
     Active Substance: LACTULOSE
     Dosage: 10 ML, QD
     Route: 065
  190. LACTULOSE [Suspect]
     Active Substance: LACTULOSE
     Dosage: 1 ML, QD
     Route: 065
     Dates: start: 2006
  191. LACTULOSE [Suspect]
     Active Substance: LACTULOSE
     Dosage: 10 ML
     Route: 050
  192. LACTULOSE [Suspect]
     Active Substance: LACTULOSE
     Dosage: UNK
     Route: 065
  193. LACTULOSE [Suspect]
     Active Substance: LACTULOSE
     Dosage: 10 ML
     Route: 065
     Dates: start: 2006
  194. LORAZEPAM [Suspect]
     Active Substance: LORAZEPAM
     Indication: Ill-defined disorder
     Route: 065
  195. LORAZEPAM [Suspect]
     Active Substance: LORAZEPAM
     Indication: Pneumonia
     Dosage: 1-2MG ONCE ONLY
     Route: 065
  196. LORAZEPAM [Suspect]
     Active Substance: LORAZEPAM
     Dosage: 1.2 MG
     Route: 065
     Dates: start: 2006
  197. LORAZEPAM [Suspect]
     Active Substance: LORAZEPAM
     Dosage: UNK
     Route: 065
  198. LORAZEPAM [Suspect]
     Active Substance: LORAZEPAM
     Dosage: 2 MG, QD
     Route: 065
  199. LORAZEPAM [Suspect]
     Active Substance: LORAZEPAM
     Dosage: UNK MG
     Route: 065
     Dates: start: 2006
  200. MAGNESIUM SULFATE [Suspect]
     Active Substance: MAGNESIUM SULFATE
     Indication: Ill-defined disorder
     Dosage: UNK
     Route: 065
  201. MAGNESIUM SULFATE [Suspect]
     Active Substance: MAGNESIUM SULFATE
     Indication: Pneumonia
     Dosage: UNK, 10ML/50% 8MMOLS/50MLS
     Route: 065
  202. MAGNESIUM SULFATE [Suspect]
     Active Substance: MAGNESIUM SULFATE
     Dosage: UNK, 10ML/50%8MMOLS/50MLS (INFUSION)
     Route: 065
     Dates: start: 2006
  203. MAGNESIUM SULFATE [Suspect]
     Active Substance: MAGNESIUM SULFATE
     Dosage: UNK, 10ML/50%8MMOLS/50MLS
     Route: 061
     Dates: start: 2006
  204. NOREPINEPHRINE [Suspect]
     Active Substance: NOREPINEPHRINE
     Indication: Ill-defined disorder
     Dosage: UNK UNK, QD
     Route: 065
     Dates: start: 2006
  205. NOREPINEPHRINE [Suspect]
     Active Substance: NOREPINEPHRINE
     Indication: Pneumonia
     Dosage: UNK
     Route: 065
     Dates: start: 2006
  206. NOREPINEPHRINE [Suspect]
     Active Substance: NOREPINEPHRINE
     Indication: Ill-defined disorder
     Dosage: UNK, QD
     Route: 065
     Dates: start: 2006
  207. NOREPINEPHRINE [Suspect]
     Active Substance: NOREPINEPHRINE
     Indication: Pneumonia
     Dosage: UNK
     Route: 065
     Dates: start: 2006
  208. NOREPINEPHRINE [Suspect]
     Active Substance: NOREPINEPHRINE
     Dosage: UNK
     Route: 065
  209. NOREPINEPHRINE [Suspect]
     Active Substance: NOREPINEPHRINE
     Dosage: UNK
     Route: 065
  210. NOREPINEPHRINE [Suspect]
     Active Substance: NOREPINEPHRINE
     Dosage: UNK
     Route: 065
  211. NOREPINEPHRINE [Suspect]
     Active Substance: NOREPINEPHRINE
     Dosage: UNK
     Route: 065
  212. POTASSIUM PHOSPHATE [Suspect]
     Active Substance: POTASSIUM PHOSPHATE
     Indication: Ill-defined disorder
     Dosage: UNK
     Route: 065
     Dates: start: 2006
  213. POTASSIUM PHOSPHATE [Suspect]
     Active Substance: POTASSIUM PHOSPHATE
     Indication: Pneumonia
     Dosage: UNK, QD (40MMOLS/100MLINFUSION)
     Route: 065
     Dates: start: 2006
  214. CANRENOATE POTASSIUM [Suspect]
     Active Substance: CANRENOATE POTASSIUM
     Indication: Ill-defined disorder
     Dosage: UNK
     Route: 065
  215. POTASSIUM CHLORIDE [Suspect]
     Active Substance: POTASSIUM CHLORIDE
     Indication: Ill-defined disorder
     Dosage: 40MMOLS/100ML INFUSION
     Route: 065
     Dates: start: 2006
  216. POTASSIUM CHLORIDE [Suspect]
     Active Substance: POTASSIUM CHLORIDE
     Indication: Pneumonia
     Dosage: 2DF, THREE TIMES A DAY DOSE UNIT: DOSAGE FORM
     Route: 065
     Dates: start: 2006
  217. POTASSIUM CHLORIDE [Suspect]
     Active Substance: POTASSIUM CHLORIDE
     Dosage: UNK
     Route: 065
     Dates: start: 2006
  218. POTASSIUM CHLORIDE [Suspect]
     Active Substance: POTASSIUM CHLORIDE
     Dosage: UNK, TID(0.33 DAY)
     Route: 065
  219. POTASSIUM CHLORIDE [Suspect]
     Active Substance: POTASSIUM CHLORIDE
     Dosage: 1 DOSAGE FORM, QD DOSE UNIT: DOSAGE FORM
     Route: 065
     Dates: start: 2006
  220. POTASSIUM CHLORIDE [Suspect]
     Active Substance: POTASSIUM CHLORIDE
     Dosage: 2 DOSAGE FORM, TID DOSE UNIT: DOSAGE FORM
     Route: 061
     Dates: start: 2006
  221. POTASSIUM CHLORIDE [Suspect]
     Active Substance: POTASSIUM CHLORIDE
     Dosage: 2 DOSAGE FORM, TID DOSE UNIT: DOSAGE FORM
     Route: 065
  222. POTASSIUM CHLORIDE [Suspect]
     Active Substance: POTASSIUM CHLORIDE
     Dosage: 2 DOSAGE FORM, TID DOSE UNIT: DOSAGE FORM
     Route: 061
     Dates: start: 2006
  223. POTASSIUM CHLORIDE [Suspect]
     Active Substance: POTASSIUM CHLORIDE
     Dosage: 2 DOSAGE FORM, TID
     Route: 065
  224. POTASSIUM CHLORIDE [Suspect]
     Active Substance: POTASSIUM CHLORIDE
     Dosage: TID
     Route: 065
  225. POTASSIUM CHLORIDE [Suspect]
     Active Substance: POTASSIUM CHLORIDE
     Dosage: 2 DOSAGE FORM, QD DOSE UNIT: DOSAGE FORM
     Route: 065
  226. POTASSIUM CHLORIDE [Suspect]
     Active Substance: POTASSIUM CHLORIDE
     Dosage: 6 DOSAGE FORM, QD DOSE UNIT: DOSAGE FORM
     Route: 065
  227. POTASSIUM CHLORIDE [Suspect]
     Active Substance: POTASSIUM CHLORIDE
     Dosage: UNK, QD
     Route: 065
     Dates: start: 2006
  228. POTASSIUM CHLORIDE [Suspect]
     Active Substance: POTASSIUM CHLORIDE
     Dosage: UNK, QD
     Route: 065
     Dates: start: 2006
  229. POTASSIUM CHLORIDE [Suspect]
     Active Substance: POTASSIUM CHLORIDE
     Dosage: UNK, TID (0.33 DAY)
     Route: 065
  230. CHLORPHENIRAMINE MALEATE [Suspect]
     Active Substance: CHLORPHENIRAMINE MALEATE
     Indication: Ill-defined disorder
     Dosage: DAILY DOSE: 40 MILLIGRAM(S), 10 MG, QID
     Route: 042
     Dates: start: 2006
  231. CHLORPHENIRAMINE MALEATE [Suspect]
     Active Substance: CHLORPHENIRAMINE MALEATE
     Indication: Pneumonia
     Dosage: 40 MG, QD(DAILY DOSE TEXT: 10MG 4/1DAYS)
     Route: 042
  232. CHLORPHENIRAMINE MALEATE [Suspect]
     Active Substance: CHLORPHENIRAMINE MALEATE
     Indication: Toxic epidermal necrolysis
     Dosage: 10 MILLIGRAM, QID
     Route: 042
     Dates: start: 2006
  233. CHLORPHENIRAMINE MALEATE [Suspect]
     Active Substance: CHLORPHENIRAMINE MALEATE
     Dosage: 10 UNK
     Route: 042
  234. CHLORPHENIRAMINE MALEATE [Suspect]
     Active Substance: CHLORPHENIRAMINE MALEATE
     Dosage: 10 MG, 1 DOSE 6 HOURS
     Route: 042
     Dates: start: 2006
  235. CHLORPHENIRAMINE MALEATE [Suspect]
     Active Substance: CHLORPHENIRAMINE MALEATE
     Dosage: 10 MG, 1 DOSE 6 HOURS
     Route: 042
     Dates: start: 2006
  236. CHLORPHENIRAMINE MALEATE [Suspect]
     Active Substance: CHLORPHENIRAMINE MALEATE
     Dosage: 40 MG, QD(DAILY DOSE TEXT: 10MG 4/1DAYS)
     Route: 042
  237. CHLORPHENIRAMINE MALEATE [Suspect]
     Active Substance: CHLORPHENIRAMINE MALEATE
     Dosage: 40 MG, QD
     Route: 065
  238. CHLORPHENIRAMINE MALEATE [Suspect]
     Active Substance: CHLORPHENIRAMINE MALEATE
     Dosage: 10 MG, QD
     Route: 042
  239. CHLORPHENIRAMINE MALEATE [Suspect]
     Active Substance: CHLORPHENIRAMINE MALEATE
     Dosage: 10 MG, QD
     Route: 042
     Dates: start: 2006
  240. PHYTONADIONE [Suspect]
     Active Substance: PHYTONADIONE
     Indication: Ill-defined disorder
     Dosage: UNK
     Route: 065
     Dates: start: 2006
  241. PHYTONADIONE [Suspect]
     Active Substance: PHYTONADIONE
     Indication: Pneumonia
     Dosage: UNK
     Route: 065
  242. CEFTRIAXONE SODIUM [Suspect]
     Active Substance: CEFTRIAXONE SODIUM
     Indication: Pneumonia
     Dosage: 2 G, QD
     Route: 042
     Dates: start: 2006
  243. CEFTRIAXONE SODIUM [Suspect]
     Active Substance: CEFTRIAXONE SODIUM
     Indication: Ill-defined disorder
     Dosage: 2 G
     Route: 042
  244. CEFTRIAXONE SODIUM [Suspect]
     Active Substance: CEFTRIAXONE SODIUM
     Dosage: 2 G
     Route: 042
     Dates: start: 2006
  245. CEFTRIAXONE SODIUM [Suspect]
     Active Substance: CEFTRIAXONE SODIUM
     Dosage: 2 UNK
     Route: 042
  246. CEFTRIAXONE SODIUM [Suspect]
     Active Substance: CEFTRIAXONE SODIUM
     Dosage: UNK
     Route: 042
     Dates: start: 2006
  247. CEFTRIAXONE SODIUM [Suspect]
     Active Substance: CEFTRIAXONE SODIUM
     Dosage: 2 G
     Route: 042
  248. CEFTRIAXONE SODIUM [Suspect]
     Active Substance: CEFTRIAXONE SODIUM
     Dosage: 1 DOSAGE FORM, PRN
     Route: 065
  249. POTASSIUM BICARBONATE\POTASSIUM CHLORIDE [Suspect]
     Active Substance: POTASSIUM BICARBONATE\POTASSIUM CHLORIDE
     Indication: Ill-defined disorder
     Dosage: 2 DL 3/1DAYS, 6 DF DAILY DOSE UNIT: DOSAGE FORM
     Route: 061
  250. POTASSIUM BICARBONATE\POTASSIUM CHLORIDE [Suspect]
     Active Substance: POTASSIUM BICARBONATE\POTASSIUM CHLORIDE
     Indication: Pneumonia
     Dosage: 6 DF, QD DOSE UNIT: DOSAGE FORM
     Route: 065
  251. POTASSIUM BICARBONATE\POTASSIUM CHLORIDE [Suspect]
     Active Substance: POTASSIUM BICARBONATE\POTASSIUM CHLORIDE
     Dosage: 6 DOSAGE FORM, 2 DF, TID DOSE UNIT: DOSAGE FORM
     Route: 061
     Dates: start: 2006
  252. POTASSIUM BICARBONATE\POTASSIUM CHLORIDE [Suspect]
     Active Substance: POTASSIUM BICARBONATE\POTASSIUM CHLORIDE
     Dosage: UNK, THREE TIMES A DAY
     Route: 065
  253. POTASSIUM BICARBONATE\POTASSIUM CHLORIDE [Suspect]
     Active Substance: POTASSIUM BICARBONATE\POTASSIUM CHLORIDE
     Dosage: UNK
     Route: 065
     Dates: start: 2006
  254. POTASSIUM BICARBONATE\POTASSIUM CHLORIDE [Suspect]
     Active Substance: POTASSIUM BICARBONATE\POTASSIUM CHLORIDE
     Dosage: 40MMOLS/100ML INFUSION
     Route: 065
     Dates: start: 2006
  255. POTASSIUM BICARBONATE\POTASSIUM CHLORIDE [Suspect]
     Active Substance: POTASSIUM BICARBONATE\POTASSIUM CHLORIDE
     Dosage: 2 DOSAGE FORM, QD DOSE UNIT: DOSAGE FORM
     Route: 065
  256. POTASSIUM BICARBONATE\POTASSIUM CHLORIDE [Suspect]
     Active Substance: POTASSIUM BICARBONATE\POTASSIUM CHLORIDE
     Dosage: 2 DOSAGE FORM, QD (DAILY DOSE TEXT: 2 DL 3/1DAYS) DOSE UNIT: DOSAGE FORM
     Route: 065
  257. POTASSIUM BICARBONATE\POTASSIUM CHLORIDE [Suspect]
     Active Substance: POTASSIUM BICARBONATE\POTASSIUM CHLORIDE
     Dosage: 2 DOSAGE FORM, Q8H (DAILY DOSE TEXT: 2 DL 3/1DAYS) DOSE UNIT: DOSAGE FORM
     Route: 065
  258. POTASSIUM BICARBONATE\POTASSIUM CHLORIDE [Suspect]
     Active Substance: POTASSIUM BICARBONATE\POTASSIUM CHLORIDE
     Dosage: 2 DOSAGE FORM, 1 DOSE 8 HOURS DOSE UNIT: DOSAGE FORM
     Route: 061
  259. POTASSIUM BICARBONATE\POTASSIUM CHLORIDE [Suspect]
     Active Substance: POTASSIUM BICARBONATE\POTASSIUM CHLORIDE
     Dosage: DAILY DOSE: 6 DOSAGE FORM, 2 DF, TID DOSE UNIT: DOSAGE FORM
     Route: 061
     Dates: start: 2006
  260. POTASSIUM BICARBONATE\POTASSIUM CHLORIDE [Suspect]
     Active Substance: POTASSIUM BICARBONATE\POTASSIUM CHLORIDE
     Dosage: UNK
     Route: 065
  261. POTASSIUM BICARBONATE\POTASSIUM CHLORIDE [Suspect]
     Active Substance: POTASSIUM BICARBONATE\POTASSIUM CHLORIDE
     Dosage: 2 UNK DOSE UNIT: DOSAGE FORM
     Route: 061
  262. POTASSIUM BICARBONATE\POTASSIUM CHLORIDE [Suspect]
     Active Substance: POTASSIUM BICARBONATE\POTASSIUM CHLORIDE
     Dosage: UNK
     Route: 065
     Dates: start: 2006
  263. POTASSIUM BICARBONATE\POTASSIUM CHLORIDE [Suspect]
     Active Substance: POTASSIUM BICARBONATE\POTASSIUM CHLORIDE
     Dosage: 2 DOSAGE FORM, Q8H, DAILY DOSE TEXT: 2 DL 3/1DAYS, DAILY DOSE: 6 DOSAGE FORM, 2 DF, TID DOSE UNIT: D
     Route: 061
     Dates: start: 2006
  264. POTASSIUM BICARBONATE\POTASSIUM CHLORIDE [Suspect]
     Active Substance: POTASSIUM BICARBONATE\POTASSIUM CHLORIDE
     Dosage: UNK40MMOLS/100ML INFUSION
     Route: 065
  265. POTASSIUM BICARBONATE\POTASSIUM CHLORIDE [Suspect]
     Active Substance: POTASSIUM BICARBONATE\POTASSIUM CHLORIDE
     Dosage: UNK UNK, TID
     Route: 065
  266. POTASSIUM BICARBONATE\POTASSIUM CHLORIDE [Suspect]
     Active Substance: POTASSIUM BICARBONATE\POTASSIUM CHLORIDE
     Dosage: 6 DOSAGE FORM, QD DOSE UNIT: DOSAGE FORM
     Route: 065
  267. POTASSIUM BICARBONATE\POTASSIUM CHLORIDE [Suspect]
     Active Substance: POTASSIUM BICARBONATE\POTASSIUM CHLORIDE
     Dosage: UNK
     Route: 065
  268. POTASSIUM BICARBONATE\POTASSIUM CHLORIDE [Suspect]
     Active Substance: POTASSIUM BICARBONATE\POTASSIUM CHLORIDE
     Dosage: UNK
     Route: 065
  269. SODIUM BICARBONATE [Suspect]
     Active Substance: SODIUM BICARBONATE
     Indication: Ill-defined disorder
     Dosage: ADMINISTRATION OVER AN HOUR
     Route: 042
     Dates: start: 2006
  270. SODIUM BICARBONATE [Suspect]
     Active Substance: SODIUM BICARBONATE
     Indication: Pneumonia
     Dosage: 100 MILLIGRAM, HOURLY
     Route: 042
  271. SODIUM BICARBONATE [Suspect]
     Active Substance: SODIUM BICARBONATE
     Indication: Product used for unknown indication
     Dosage: 100 MG, 1 DOSE HOURLY
     Route: 042
     Dates: start: 2006
  272. SODIUM BICARBONATE [Suspect]
     Active Substance: SODIUM BICARBONATE
     Dosage: SODIUM HYDROGEN CARBONATE,100 MG EVERY HOUR
     Route: 042
  273. SODIUM BICARBONATE [Suspect]
     Active Substance: SODIUM BICARBONATE
     Dosage: 100 MG, QOW
     Route: 042
     Dates: start: 2006
  274. SODIUM BICARBONATE [Suspect]
     Active Substance: SODIUM BICARBONATE
     Dosage: 100 MG,BIWEEKLY
     Route: 042
  275. SODIUM BICARBONATE [Suspect]
     Active Substance: SODIUM BICARBONATE
     Dosage: 100 MG,BIWEEKLY
     Route: 042
  276. SODIUM BICARBONATE [Suspect]
     Active Substance: SODIUM BICARBONATE
     Dosage: 100 MG,BIWEEKLY
     Route: 042
     Dates: start: 2006
  277. SODIUM BICARBONATE [Suspect]
     Active Substance: SODIUM BICARBONATE
     Dosage: UNK
     Route: 065
  278. SODIUM CHLORIDE [Suspect]
     Active Substance: SODIUM CHLORIDE
     Indication: Ill-defined disorder
     Dosage: 0.9 % PERCENT SOLUTION
     Route: 042
     Dates: start: 2006
  279. SODIUM CHLORIDE [Suspect]
     Active Substance: SODIUM CHLORIDE
     Indication: Pneumonia
     Dosage: 0.9 %, QD
     Route: 042
     Dates: start: 2006
  280. SODIUM CHLORIDE [Suspect]
     Active Substance: SODIUM CHLORIDE
     Dosage: 1 %, QD
     Route: 042
     Dates: start: 2006
  281. SODIUM CHLORIDE [Suspect]
     Active Substance: SODIUM CHLORIDE
     Dosage: 1 %
     Route: 042
     Dates: start: 2006
  282. SODIUM CHLORIDE [Suspect]
     Active Substance: SODIUM CHLORIDE
     Dosage: 1 %, QD
     Route: 042
     Dates: start: 2006
  283. SODIUM CHLORIDE [Suspect]
     Active Substance: SODIUM CHLORIDE
     Dosage: 0.9 PERCENT SOLUTION
     Route: 042
     Dates: start: 2006
  284. SODIUM CHLORIDE [Suspect]
     Active Substance: SODIUM CHLORIDE
     Dosage: UNK
     Route: 042
  285. SODIUM CHLORIDE [Suspect]
     Active Substance: SODIUM CHLORIDE
     Dosage: 0.9 %, QD
     Route: 042
  286. SODIUM CHLORIDE [Suspect]
     Active Substance: SODIUM CHLORIDE
     Dosage: 0.9 %, QD
     Route: 042
  287. SODIUM CHLORIDE [Suspect]
     Active Substance: SODIUM CHLORIDE
     Dosage: UNK
     Route: 065
  288. SODIUM CHLORIDE [Suspect]
     Active Substance: SODIUM CHLORIDE
     Dosage: UNK
     Route: 065
  289. SODIUM BICARBONATE [Suspect]
     Active Substance: SODIUM BICARBONATE
     Indication: Pneumonia
     Dosage: 100 ML, 1 DOSE HOURLY
     Route: 042
  290. SODIUM BICARBONATE [Suspect]
     Active Substance: SODIUM BICARBONATE
     Indication: Ill-defined disorder
     Dosage: 100 ML HOURLY
     Route: 065
  291. SILVER SULFADIAZENE [Suspect]
     Active Substance: SILVER SULFADIAZINE
     Indication: Ill-defined disorder
     Dosage: UNK
     Route: 061
     Dates: start: 2006
  292. SILVER SULFADIAZENE [Suspect]
     Active Substance: SILVER SULFADIAZINE
     Indication: Pneumonia
  293. SULFADIAZINE [Suspect]
     Active Substance: SULFADIAZINE
     Indication: Ill-defined disorder
     Dosage: UNK
     Route: 061
     Dates: start: 2006
  294. SULFADIAZINE [Suspect]
     Active Substance: SULFADIAZINE
     Indication: Pneumonia
     Dosage: UNK
     Route: 061
  295. THIAMINE [Suspect]
     Active Substance: THIAMINE
     Indication: Ill-defined disorder
     Dosage: 100 MG, QD
     Route: 048
     Dates: start: 2006
  296. THIAMINE [Suspect]
     Active Substance: THIAMINE
     Indication: Pneumonia
     Dosage: 100 MG, TID, 8 HOURS
     Route: 048
  297. THIAMINE [Suspect]
     Active Substance: THIAMINE
     Dosage: 100 MG, QD
     Route: 042
  298. THIAMINE [Suspect]
     Active Substance: THIAMINE
     Dosage: UNK
     Route: 065
  299. THIAMINE [Suspect]
     Active Substance: THIAMINE
     Dosage: 100 MG, QD
     Route: 048
  300. VITAMIN K1 [Suspect]
     Active Substance: PHYTONADIONE
     Indication: Ill-defined disorder
     Dosage: UNK
     Route: 065
     Dates: start: 2006
  301. VITAMIN K1 [Suspect]
     Active Substance: PHYTONADIONE
     Indication: Pneumonia
     Dosage: UNK
     Route: 065
     Dates: start: 2006
  302. VITAMIN K1 [Suspect]
     Active Substance: PHYTONADIONE
     Dosage: UNK
     Route: 065
  303. MIDODRINE HYDROCHLORIDE [Suspect]
     Active Substance: MIDODRINE HYDROCHLORIDE
     Indication: Ill-defined disorder
     Dosage: UNK
     Route: 048
  304. RIBOFLAVIN [Suspect]
     Active Substance: RIBOFLAVIN
     Indication: Ill-defined disorder
     Route: 065
  305. MAGNESIUM HYDROXIDE [Suspect]
     Active Substance: MAGNESIUM HYDROXIDE
     Indication: Pneumonia
     Dosage: UNK,10ML/50% 8MMOLS/50MLS
     Route: 061
     Dates: start: 2006
  306. MAGNESIUM HYDROXIDE [Suspect]
     Active Substance: MAGNESIUM HYDROXIDE
     Indication: Ill-defined disorder
  307. INSULIN HUMAN [Suspect]
     Active Substance: INSULIN HUMAN
     Indication: Pneumonia
     Dosage: UNK
     Route: 042
     Dates: start: 2006
  308. POTASSIUM IODIDE [Suspect]
     Active Substance: POTASSIUM IODIDE
     Indication: Pneumonia
     Dosage: UNK
     Route: 065
     Dates: start: 2006
  309. MUPIROCIN CALCIUM [Suspect]
     Active Substance: MUPIROCIN CALCIUM
     Indication: Pneumonia
     Dosage: UNK
     Route: 065
     Dates: start: 2006
  310. MUPIROCIN CALCIUM [Suspect]
     Active Substance: MUPIROCIN CALCIUM
     Indication: Ill-defined disorder
     Dosage: UNK
     Route: 065
  311. MUPIROCIN CALCIUM [Suspect]
     Active Substance: MUPIROCIN CALCIUM
     Indication: Toxic epidermal necrolysis
     Dosage: UNK
     Route: 042
     Dates: start: 2006
  312. MUPIROCIN CALCIUM [Suspect]
     Active Substance: MUPIROCIN CALCIUM
     Dosage: UNK
     Route: 065
     Dates: start: 2006
  313. CALCIUM CHLORIDE [Suspect]
     Active Substance: CALCIUM CHLORIDE
     Indication: Ill-defined disorder
     Dosage: 120 MG, QD, 10 ML
     Route: 042
     Dates: start: 2006
  314. CALCIUM CHLORIDE [Suspect]
     Active Substance: CALCIUM CHLORIDE
     Indication: Pneumonia
     Dosage: UNK
     Route: 065
     Dates: start: 2006
  315. CALCIUM CHLORIDE [Suspect]
     Active Substance: CALCIUM CHLORIDE
     Dosage: 120 DOSAGE FORM, 10 MILLILITER
     Route: 042
  316. CALCIUM CHLORIDE [Suspect]
     Active Substance: CALCIUM CHLORIDE
     Dosage: UNK
     Route: 042
  317. CALCIUM CHLORIDE [Suspect]
     Active Substance: CALCIUM CHLORIDE
     Dosage: 120 DOSAGE FORM,10 ML
     Route: 042
     Dates: start: 2006
  318. TINZAPARIN SODIUM [Suspect]
     Active Substance: TINZAPARIN SODIUM
     Indication: Ill-defined disorder
     Dosage: 1 DOSAGE FORM, 3500 MCL
     Route: 065
  319. TINZAPARIN SODIUM [Suspect]
     Active Substance: TINZAPARIN SODIUM
     Indication: Pneumonia
     Dosage: 1 DOSAGE FORM, QD,3500 MCL
     Route: 065
     Dates: start: 2006
  320. TINZAPARIN SODIUM [Suspect]
     Active Substance: TINZAPARIN SODIUM
     Dosage: 1 DOSAGE FORM, 3500 MICROLITRE
     Route: 065
  321. TINZAPARIN SODIUM [Suspect]
     Active Substance: TINZAPARIN SODIUM
     Dosage: 3500 UG, QD
     Route: 065
     Dates: start: 2006
  322. TINZAPARIN SODIUM [Suspect]
     Active Substance: TINZAPARIN SODIUM
     Dosage: 1 DOSAGE FORM, 3500 MCL
     Route: 065
     Dates: start: 2006
  323. TINZAPARIN SODIUM [Suspect]
     Active Substance: TINZAPARIN SODIUM
     Dosage: 4 ML, QD
     Route: 065
  324. PROPOFOL [Suspect]
     Active Substance: PROPOFOL
     Indication: Ill-defined disorder
     Dosage: INFUSION DRUG DOSAGE FORM 333
     Route: 065
     Dates: start: 2006
  325. PROPOFOL [Suspect]
     Active Substance: PROPOFOL
     Indication: Pneumonia
     Dosage: UNK,EMULSION FOR INJECTION/INFUSION
     Route: 042
  326. PROPOFOL [Suspect]
     Active Substance: PROPOFOL
     Dosage: UNK,EMULSION FOR INJECTION/INFUSION
     Route: 065
     Dates: start: 2006
  327. PROPOFOL [Suspect]
     Active Substance: PROPOFOL
     Dosage: UNK, INTRAVENOUS INFUSION
     Route: 042
     Dates: start: 2006
  328. CALCIUM CHLORIDE HEXAHYDRATE [Suspect]
     Active Substance: CALCIUM CHLORIDE HEXAHYDRATE
     Indication: Pneumonia
     Dosage: UNK
     Route: 065
     Dates: start: 2006
  329. HEPARIN CALCIUM [Suspect]
     Active Substance: HEPARIN CALCIUM
     Indication: Ill-defined disorder
     Dosage: UNK
     Route: 065
  330. CANRENOIC ACID [Suspect]
     Active Substance: CANRENOIC ACID
     Indication: Ill-defined disorder
     Dosage: UNK
     Route: 065
  331. THIAMINE MONONITRATE [Suspect]
     Active Substance: THIAMINE MONONITRATE
     Indication: Pneumonia
     Dosage: UNK
     Route: 065
  332. THIAMINE MONONITRATE [Suspect]
     Active Substance: THIAMINE MONONITRATE
     Indication: Ill-defined disorder
     Dosage: 100 MG, QD
     Route: 048
  333. INSULIN HUMAN [Suspect]
     Active Substance: INSULIN HUMAN
     Indication: Pneumonia
     Dosage: UNK
     Route: 042
     Dates: start: 2006
  334. MUPIROCIN [Suspect]
     Active Substance: MUPIROCIN
     Indication: Pneumonia
     Dosage: UNK
     Route: 065
     Dates: start: 2006
  335. MUPIROCIN [Suspect]
     Active Substance: MUPIROCIN
     Indication: Ill-defined disorder
     Dosage: UNK
     Route: 065
  336. MUPIROCIN [Suspect]
     Active Substance: MUPIROCIN
     Indication: Toxic epidermal necrolysis
     Dosage: UNK,50 UNITS/50MLI
     Route: 042
     Dates: start: 2006
  337. MUPIROCIN [Suspect]
     Active Substance: MUPIROCIN
     Dosage: UNK
     Route: 065
     Dates: start: 2006
  338. AMOXICILLIN TRIHYDRATE [Suspect]
     Active Substance: AMOXICILLIN
     Indication: Ill-defined disorder
     Dosage: 1 G,8 HOURS
     Route: 065
  339. AMOXICILLIN TRIHYDRATE [Suspect]
     Active Substance: AMOXICILLIN
     Dosage: 250 MG,8 HOURS
     Route: 065
  340. VITAMIN B [Suspect]
     Active Substance: VITAMIN B
     Indication: Ill-defined disorder
     Dosage: UNK
     Route: 065
     Dates: start: 2006
  341. GLUTAMIC ACID [Suspect]
     Active Substance: GLUTAMIC ACID
     Indication: Ill-defined disorder
     Dosage: UNK
     Route: 065
  342. TRICLOSAN [Suspect]
     Active Substance: TRICLOSAN
     Indication: Pneumonia
     Dosage: UNK
     Route: 065
  343. TRICLOSAN [Suspect]
     Active Substance: TRICLOSAN
     Indication: Ill-defined disorder
     Dosage: UNK
     Route: 065
     Dates: start: 2006
  344. TRICLOSAN [Suspect]
     Active Substance: TRICLOSAN
     Dosage: 24 DOSAGE FORM
     Route: 065
     Dates: start: 2006
  345. TRICLOSAN [Suspect]
     Active Substance: TRICLOSAN
     Dosage: UNK
     Route: 065
     Dates: start: 2006
  346. IPRATROPIUM BROMIDE [Concomitant]
     Active Substance: IPRATROPIUM BROMIDE
     Indication: Product used for unknown indication
     Dosage: UNK
     Route: 065
  347. IPRATROPIUM BROMIDE [Concomitant]
     Active Substance: IPRATROPIUM BROMIDE
     Indication: Ill-defined disorder
  348. ERYTHROMYCIN STEARATE [Concomitant]
     Active Substance: ERYTHROMYCIN STEARATE
     Indication: Product used for unknown indication
     Dosage: UNK
     Route: 065
  349. CIPROFLOXACIN [Concomitant]
     Active Substance: CIPROFLOXACIN
     Indication: Ill-defined disorder
     Dosage: 400 MG, QD
     Route: 042
  350. CIPROFLOXACIN [Concomitant]
     Active Substance: CIPROFLOXACIN
     Dosage: 400 MG, QD
     Route: 042
  351. CIPROFLOXACIN [Concomitant]
     Active Substance: CIPROFLOXACIN
     Dosage: 400 MG, QD
     Route: 042
  352. CIPROFLOXACIN [Concomitant]
     Active Substance: CIPROFLOXACIN
     Dosage: 400 UNK
     Route: 042
  353. CIPROFLOXACIN [Concomitant]
     Active Substance: CIPROFLOXACIN
     Dosage: 400 MG, QD
     Route: 042
  354. AMOXICILLIN\CLAVULANATE POTASSIUM [Concomitant]
     Active Substance: AMOXICILLIN\CLAVULANATE POTASSIUM
     Indication: Product used for unknown indication
     Dosage: 375 MILLIGRAM, TID
     Route: 048
     Dates: start: 20060913
  355. AMOXICILLIN\CLAVULANATE POTASSIUM [Concomitant]
     Active Substance: AMOXICILLIN\CLAVULANATE POTASSIUM
     Dosage: 375 MG, TID
     Route: 048
     Dates: start: 20060913
  356. AMOXICILLIN\CLAVULANATE POTASSIUM [Concomitant]
     Active Substance: AMOXICILLIN\CLAVULANATE POTASSIUM
     Dosage: 375 MILLIGRAM, Q8H (DAILY DOSE TEXT: 375MG 3/1DAYS), TID UNK
     Route: 048
     Dates: start: 20060913
  357. AMOXICILLIN\CLAVULANATE POTASSIUM [Concomitant]
     Active Substance: AMOXICILLIN\CLAVULANATE POTASSIUM
     Dosage: 875 MG, TID
     Route: 048
     Dates: start: 20060913
  358. AMOXICILLIN\CLAVULANATE POTASSIUM [Concomitant]
     Active Substance: AMOXICILLIN\CLAVULANATE POTASSIUM
     Dosage: 250 UNK
     Route: 048
  359. AMOXICILLIN\CLAVULANATE POTASSIUM [Concomitant]
     Active Substance: AMOXICILLIN\CLAVULANATE POTASSIUM
     Dosage: 1125 MG, QD
     Route: 048
     Dates: start: 20060913
  360. AMOXICILLIN\CLAVULANATE POTASSIUM [Concomitant]
     Active Substance: AMOXICILLIN\CLAVULANATE POTASSIUM
     Dosage: UNK
     Route: 048
  361. AMOXICILLIN\CLAVULANATE POTASSIUM [Concomitant]
     Active Substance: AMOXICILLIN\CLAVULANATE POTASSIUM
     Dosage: 2625 MG, QD
     Route: 048
     Dates: start: 20060913
  362. AMOXICILLIN\CLAVULANATE POTASSIUM [Concomitant]
     Active Substance: AMOXICILLIN\CLAVULANATE POTASSIUM
     Dosage: 250 MG
     Route: 048
  363. AMOXICILLIN\CLAVULANATE POTASSIUM [Concomitant]
     Active Substance: AMOXICILLIN\CLAVULANATE POTASSIUM
     Dosage: 375 MG
     Route: 048
     Dates: start: 20060913
  364. PIPERACILLIN SODIUM\TAZOBACTAM SODIUM [Concomitant]
     Active Substance: PIPERACILLIN SODIUM\TAZOBACTAM SODIUM
     Indication: Ill-defined disorder
     Dosage: 4.5 MG, TID
     Route: 042
     Dates: start: 2006
  365. PIPERACILLIN SODIUM\TAZOBACTAM SODIUM [Concomitant]
     Active Substance: PIPERACILLIN SODIUM\TAZOBACTAM SODIUM
     Dosage: INCREASED TO 4 TIMES DAILY BETWEEN 04/10/2006 AND 09/10/2006
     Route: 042
     Dates: start: 20061004, end: 20061009
  366. PIPERACILLIN SODIUM\TAZOBACTAM SODIUM [Concomitant]
     Active Substance: PIPERACILLIN SODIUM\TAZOBACTAM SODIUM
     Dosage: 13.5 G, QD
     Route: 042
     Dates: start: 20061004, end: 20061009
  367. PIPERACILLIN SODIUM\TAZOBACTAM SODIUM [Concomitant]
     Active Substance: PIPERACILLIN SODIUM\TAZOBACTAM SODIUM
     Dosage: 4.5 G, TID
     Route: 042
     Dates: start: 20061009
  368. PIPERACILLIN SODIUM\TAZOBACTAM SODIUM [Concomitant]
     Active Substance: PIPERACILLIN SODIUM\TAZOBACTAM SODIUM
     Dosage: 4.5 G, QID
     Route: 042
     Dates: start: 20061004, end: 20061009
  369. PIPERACILLIN SODIUM\TAZOBACTAM SODIUM [Concomitant]
     Active Substance: PIPERACILLIN SODIUM\TAZOBACTAM SODIUM
     Dosage: INCREASED TO 4 TIMES DAILY BETWEEN 04/10/2006 AND 09/10/2006
     Route: 042
     Dates: start: 20061004, end: 20061009
  370. PIPERACILLIN SODIUM\TAZOBACTAM SODIUM [Concomitant]
     Active Substance: PIPERACILLIN SODIUM\TAZOBACTAM SODIUM
     Dosage: 14 G, QD
     Route: 042
     Dates: start: 20061004, end: 20061009
  371. PIPERACILLIN SODIUM\TAZOBACTAM SODIUM [Concomitant]
     Active Substance: PIPERACILLIN SODIUM\TAZOBACTAM SODIUM
     Dosage: 5 G, 1 DOSE 8 HOURS
     Route: 065
  372. PIPERACILLIN SODIUM\TAZOBACTAM SODIUM [Concomitant]
     Active Substance: PIPERACILLIN SODIUM\TAZOBACTAM SODIUM
     Dosage: 5 G, 1 DOSE 6 HOURS
     Route: 065
     Dates: start: 20060410, end: 20060910
  373. PIPERACILLIN SODIUM\TAZOBACTAM SODIUM [Concomitant]
     Active Substance: PIPERACILLIN SODIUM\TAZOBACTAM SODIUM
     Dosage: 4.5 MILLIGRAM, QD (INCREASED TO 4 TIMES DAILY BETWEEN 04/10/2006 AND 09/10/2006)
     Route: 065
  374. PIPERACILLIN SODIUM\TAZOBACTAM SODIUM [Concomitant]
     Active Substance: PIPERACILLIN SODIUM\TAZOBACTAM SODIUM
     Dosage: 4.5 MG
     Route: 042
     Dates: start: 2006
  375. PIPERACILLIN SODIUM\TAZOBACTAM SODIUM [Concomitant]
     Active Substance: PIPERACILLIN SODIUM\TAZOBACTAM SODIUM
     Dosage: INCREASED TO 4 TIMES DAILY BETWEEN 04/10/2006 AND 09/10/2006
     Route: 042
     Dates: start: 20061004, end: 20061009
  376. PIPERACILLIN SODIUM\TAZOBACTAM SODIUM [Concomitant]
     Active Substance: PIPERACILLIN SODIUM\TAZOBACTAM SODIUM
     Dosage: 14 G, QD
     Route: 065
  377. PIPERACILLIN SODIUM\TAZOBACTAM SODIUM [Concomitant]
     Active Substance: PIPERACILLIN SODIUM\TAZOBACTAM SODIUM
     Dosage: 4.5 G, TID
     Route: 042
     Dates: start: 20061004, end: 20061009
  378. PIPERACILLIN SODIUM\TAZOBACTAM SODIUM [Concomitant]
     Active Substance: PIPERACILLIN SODIUM\TAZOBACTAM SODIUM
     Dosage: 13.5 G, QD
     Route: 042
     Dates: start: 20061004, end: 20061009
  379. PIPERACILLIN SODIUM\TAZOBACTAM SODIUM [Concomitant]
     Active Substance: PIPERACILLIN SODIUM\TAZOBACTAM SODIUM
     Dosage: 4.5 G, TID
     Route: 065
  380. PIPERACILLIN SODIUM\TAZOBACTAM SODIUM [Concomitant]
     Active Substance: PIPERACILLIN SODIUM\TAZOBACTAM SODIUM
     Dosage: 4.5 G, QID
     Route: 042
     Dates: start: 20061004, end: 20061009
  381. PIPERACILLIN SODIUM\TAZOBACTAM SODIUM [Concomitant]
     Active Substance: PIPERACILLIN SODIUM\TAZOBACTAM SODIUM
     Dosage: 4.5 G, 1 DOSE 6 HOURS
     Route: 065
  382. PIPERACILLIN SODIUM\TAZOBACTAM SODIUM [Concomitant]
     Active Substance: PIPERACILLIN SODIUM\TAZOBACTAM SODIUM
     Dosage: 4.5 G, TID
     Route: 042
  383. PIPERACILLIN SODIUM\TAZOBACTAM SODIUM [Concomitant]
     Active Substance: PIPERACILLIN SODIUM\TAZOBACTAM SODIUM
     Dosage: 4.5 MG, QID
     Route: 065
     Dates: start: 2006
  384. PIPERACILLIN SODIUM\TAZOBACTAM SODIUM [Concomitant]
     Active Substance: PIPERACILLIN SODIUM\TAZOBACTAM SODIUM
     Dosage: 4.5 MG, QID
     Route: 042
     Dates: start: 20061009
  385. PIPERACILLIN SODIUM\TAZOBACTAM SODIUM [Concomitant]
     Active Substance: PIPERACILLIN SODIUM\TAZOBACTAM SODIUM
     Dosage: UNK
     Route: 065
  386. PIPERACILLIN SODIUM\TAZOBACTAM SODIUM [Concomitant]
     Active Substance: PIPERACILLIN SODIUM\TAZOBACTAM SODIUM
     Dosage: 54 G, QD
     Route: 042
     Dates: start: 20060104, end: 20060109
  387. PIPERACILLIN SODIUM\TAZOBACTAM SODIUM [Concomitant]
     Active Substance: PIPERACILLIN SODIUM\TAZOBACTAM SODIUM
     Dosage: 4.5 G, QD
     Route: 042
  388. ASPIRIN KOMPLEX [Concomitant]
     Indication: Ill-defined disorder
     Dosage: UNK
     Route: 065
  389. ERYTHROMYCIN [Concomitant]
     Active Substance: ERYTHROMYCIN
     Indication: Ill-defined disorder
     Dosage: 250 MG, QD
     Route: 050
  390. ERYTHROMYCIN [Concomitant]
     Active Substance: ERYTHROMYCIN
     Dosage: 250 MG
     Route: 050
  391. ERYTHROMYCIN [Concomitant]
     Active Substance: ERYTHROMYCIN
     Dosage: 250 MG, QD
     Route: 050
  392. ERYTHROMYCIN [Concomitant]
     Active Substance: ERYTHROMYCIN
     Dosage: 250 MG
     Route: 050
  393. ERYTHROMYCIN [Concomitant]
     Active Substance: ERYTHROMYCIN
     Dosage: 25 MG
     Route: 065
  394. ERYTHROMYCIN [Concomitant]
     Active Substance: ERYTHROMYCIN
     Dosage: 10 MG, QD
     Route: 042
  395. ERYTHROMYCIN [Concomitant]
     Active Substance: ERYTHROMYCIN
     Dosage: UNK
     Route: 065
  396. METOCLOPRAMIDE [Concomitant]
     Active Substance: METOCLOPRAMIDE
     Indication: Ill-defined disorder
     Dosage: 10 MG
     Route: 042
  397. METOCLOPRAMIDE [Concomitant]
     Active Substance: METOCLOPRAMIDE
     Dosage: 10 MG, QD
     Route: 042
  398. METOCLOPRAMIDE [Concomitant]
     Active Substance: METOCLOPRAMIDE
     Dosage: 10 MG
     Route: 048
  399. METOCLOPRAMIDE [Concomitant]
     Active Substance: METOCLOPRAMIDE
     Dosage: 10 MG, QD
     Route: 042
  400. PANTOPRAZOLE [Concomitant]
     Active Substance: PANTOPRAZOLE
     Indication: Ill-defined disorder
     Dosage: 40 MG, QD
     Route: 042
  401. PANTOPRAZOLE [Concomitant]
     Active Substance: PANTOPRAZOLE
     Dosage: 40 MG, QD
     Route: 042
  402. PANTOPRAZOLE [Concomitant]
     Active Substance: PANTOPRAZOLE
     Dosage: 40 MG, QD
     Route: 042
  403. PANTOPRAZOLE [Concomitant]
     Active Substance: PANTOPRAZOLE
     Dosage: 40 MG, QD
     Route: 042
  404. ATROVENT [Concomitant]
     Active Substance: IPRATROPIUM BROMIDE
     Indication: Ill-defined disorder
     Dosage: 1 DOSAGE FORM, PRN,NEBULISER LIQUID
     Route: 065
  405. ATROVENT [Concomitant]
     Active Substance: IPRATROPIUM BROMIDE
     Dosage: UNK, NEBULISER LIQUID
     Route: 048
  406. ATROVENT [Concomitant]
     Active Substance: IPRATROPIUM BROMIDE
     Dosage: UNK, PRN,NEBULISER LIQUID
     Route: 065
  407. ATROVENT [Concomitant]
     Active Substance: IPRATROPIUM BROMIDE
     Dosage: UNK,NEBULISER LIQUID
     Route: 065
  408. ATROVENT [Concomitant]
     Active Substance: IPRATROPIUM BROMIDE
     Dosage: UNK
     Route: 065
  409. ATROVENT [Concomitant]
     Active Substance: IPRATROPIUM BROMIDE
     Dosage: 1 DOSAGE FORM, NEBULISER LIQUID
     Route: 065
  410. ASPIRIN [Concomitant]
     Active Substance: ASPIRIN
     Indication: Ill-defined disorder
     Dosage: UNKNOWN
     Route: 048
  411. ASPIRIN [Concomitant]
     Active Substance: ASPIRIN
     Dosage: UNK
     Route: 065
  412. ZOPICLONE [Concomitant]
     Active Substance: ZOPICLONE
     Indication: Ill-defined disorder
     Dosage: UNK
     Route: 048
  413. VANCOMYCIN [Concomitant]
     Active Substance: VANCOMYCIN
     Indication: Ill-defined disorder
     Dosage: 1 G, QD
     Route: 042
  414. VANCOMYCIN [Concomitant]
     Active Substance: VANCOMYCIN
     Dosage: 1 G, QD, 1G 1/1DAYS
     Route: 042
  415. AMOXICILLIN [Concomitant]
     Active Substance: AMOXICILLIN
     Indication: Ill-defined disorder
     Dosage: 250 MG
     Route: 048
     Dates: start: 20060913
  416. AMOXICILLIN [Concomitant]
     Active Substance: AMOXICILLIN
     Indication: Pneumonia
     Dosage: 250 UNK
     Route: 048
  417. AMOXICILLIN [Concomitant]
     Active Substance: AMOXICILLIN
     Dosage: 3 G, 1 DOSE HOURLY
     Route: 042
  418. AMOXICILLIN [Concomitant]
     Active Substance: AMOXICILLIN
     Dosage: UNK
     Route: 065
     Dates: start: 20060913
  419. AMOXICILLIN [Concomitant]
     Active Substance: AMOXICILLIN
     Dosage: 3 G, TID
     Route: 042
     Dates: start: 20060913
  420. AMOXICILLIN [Concomitant]
     Active Substance: AMOXICILLIN
     Dosage: 9 G, TID
     Route: 065
     Dates: start: 20060913
  421. AMOXICILLIN [Concomitant]
     Active Substance: AMOXICILLIN
     Dosage: 250 MG, TID
     Route: 042
     Dates: start: 20060913
  422. AMOXICILLIN [Concomitant]
     Active Substance: AMOXICILLIN
     Dosage: 1 G, TIME INTERVAL
     Route: 042
  423. AMOXICILLIN [Concomitant]
     Active Substance: AMOXICILLIN
     Dosage: 250 UNK
     Route: 042
  424. AMOXICILLIN [Concomitant]
     Active Substance: AMOXICILLIN
     Dosage: 3 G, 1 G 3/1 DAYS
     Route: 042
  425. AMOXICILLIN [Concomitant]
     Active Substance: AMOXICILLIN
     Dosage: 250 MG, QD
     Route: 048
     Dates: start: 20060913
  426. AMOXICILLIN [Concomitant]
     Active Substance: AMOXICILLIN
     Dosage: 1 G, 8 HOURS
     Route: 042
  427. AMOXICILLIN [Concomitant]
     Active Substance: AMOXICILLIN
     Dosage: UNK
     Route: 042
  428. MIDODRINE HYDROCHLORIDE [Concomitant]
     Active Substance: MIDODRINE HYDROCHLORIDE
     Indication: Ill-defined disorder
     Dosage: UNK
     Route: 048
  429. MIDODRINE HYDROCHLORIDE [Concomitant]
     Active Substance: MIDODRINE HYDROCHLORIDE
     Dosage: UNK MG
     Route: 048
  430. CHLORPHENIRAMINE MALEATE [Concomitant]
     Active Substance: CHLORPHENIRAMINE MALEATE
     Indication: Toxic epidermal necrolysis
     Dosage: 40 MG, QD
     Route: 042
     Dates: start: 2006
  431. CHLORPHENIRAMINE MALEATE [Concomitant]
     Active Substance: CHLORPHENIRAMINE MALEATE
     Indication: Ill-defined disorder
     Dosage: 10 MG, Q6H
     Route: 042
  432. CHLORPHENIRAMINE MALEATE [Concomitant]
     Active Substance: CHLORPHENIRAMINE MALEATE
     Indication: Pneumonia
     Dosage: 40 MG, QD
     Route: 042
  433. CHLORPHENIRAMINE MALEATE [Concomitant]
     Active Substance: CHLORPHENIRAMINE MALEATE
     Dosage: 40 MG,10 MG, QID
     Route: 042
     Dates: start: 2006
  434. CHLORPHENIRAMINE MALEATE [Concomitant]
     Active Substance: CHLORPHENIRAMINE MALEATE
     Dosage: 10 MG, QD
     Route: 042
     Dates: start: 2006
  435. CHLORPHENIRAMINE MALEATE [Concomitant]
     Active Substance: CHLORPHENIRAMINE MALEATE
     Dosage: 10 MG, 1 DOSE 6 HOURS
     Route: 042
  436. CHLORPHENIRAMINE MALEATE [Concomitant]
     Active Substance: CHLORPHENIRAMINE MALEATE
     Dosage: 40 MG, QD
     Route: 042
  437. CHLORPHENIRAMINE MALEATE [Concomitant]
     Active Substance: CHLORPHENIRAMINE MALEATE
     Dosage: 40 MG, QD
     Route: 042
     Dates: start: 2006
  438. CHLORPHENIRAMINE MALEATE [Concomitant]
     Active Substance: CHLORPHENIRAMINE MALEATE
     Dosage: 10 MG, QD
     Route: 065
  439. TRICLOSAN [Concomitant]
     Active Substance: TRICLOSAN
     Indication: Pneumonia
     Dosage: UNK
     Route: 065
     Dates: start: 2006
  440. TRICLOSAN [Concomitant]
     Active Substance: TRICLOSAN
     Indication: Ill-defined disorder
     Dosage: 1 G, QD
     Route: 042

REACTIONS (4)
  - Drug hypersensitivity [Unknown]
  - Toxic epidermal necrolysis [Unknown]
  - Product use in unapproved indication [Unknown]
  - Off label use [Unknown]

NARRATIVE: CASE EVENT DATE: 20060101
